FAERS Safety Report 8446379-5 (Version None)
Quarter: 2012Q2

REPORT INFORMATION
  Report Type: 
  Country: None (occurrence: None)
  Receive Date: 20120618
  Receipt Date: 20120614
  Transmission Date: 20120825
  Serious: No
  Sender: FDA-Public Use
  Company Number: US-PFIZER INC-2012144045

PATIENT
  Sex: Female
  Weight: 54 kg

DRUGS (4)
  1. LYRICA [Suspect]
     Indication: FIBROMYALGIA
     Dosage: 325MG IN A DAY (100MG, 3X/DAY AND 25MG, 1X/DAY)
     Route: 048
     Dates: start: 20080501
  2. MICARDIS HCT [Concomitant]
     Indication: HYPERTENSION
     Dosage: UNK
  3. SYNTHROID [Concomitant]
     Indication: HYPOTHYROIDISM
     Dosage: UNK
  4. LYRICA [Suspect]
     Indication: PAIN
     Dosage: 100 MG, 3X/DAY
     Route: 048

REACTIONS (5)
  - MEMORY IMPAIRMENT [None]
  - INSOMNIA [None]
  - PAIN [None]
  - DRUG INEFFECTIVE [None]
  - ARTHRALGIA [None]
